FAERS Safety Report 8331617-X (Version None)
Quarter: 2012Q2

REPORT INFORMATION
  Report Type: 
  Country: None (occurrence: None)
  Receive Date: 20120502
  Receipt Date: 20120419
  Transmission Date: 20120825
  Serious: No
  Sender: FDA-Public Use
  Company Number: US-AMGEN-USASP2012024937

PATIENT
  Age: 64 Year
  Sex: Female

DRUGS (1)
  1. ENBREL [Suspect]
     Indication: RHEUMATOID ARTHRITIS
     Dosage: 50 MG, QWK
     Dates: start: 20100301

REACTIONS (6)
  - C-REACTIVE PROTEIN INCREASED [None]
  - FATIGUE [None]
  - PAIN [None]
  - RED BLOOD CELL SEDIMENTATION RATE INCREASED [None]
  - ARTHRALGIA [None]
  - INFLUENZA [None]
